FAERS Safety Report 10862683 (Version 2)
Quarter: 2015Q1

REPORT INFORMATION
  Report Type: Spontaneous
  Country: US (occurrence: None)
  Receive Date: 20150219
  Receipt Date: 20150226
  Transmission Date: 20150721
  Serious: Yes (Death, Hospitalization)
  Sender: FDA-Public Use
  Company Number: SP09009

PATIENT
  Age: 75 Year
  Sex: Female

DRUGS (4)
  1. NIFEDIPINE. [Concomitant]
     Active Substance: NIFEDIPINE
  2. OPIOIDS [Concomitant]
     Active Substance: UNSPECIFIED INGREDIENT
  3. XIFAXAN [Suspect]
     Active Substance: RIFAXIMIN
     Indication: SMALL INTESTINAL BACTERIAL OVERGROWTH
     Route: 048
  4. PAROXETINE [Concomitant]
     Active Substance: PAROXETINE\PAROXETINE HYDROCHLORIDE

REACTIONS (16)
  - Resting tremor [None]
  - Mental status changes [None]
  - Asthenia [None]
  - Renal failure [None]
  - Renal tubular disorder [None]
  - Failure to thrive [None]
  - Malnutrition [None]
  - Hyponatraemia [None]
  - Gastrointestinal hypomotility [None]
  - Hyperoxaluria [None]
  - Decreased appetite [None]
  - Crystal nephropathy [None]
  - Haemodialysis [None]
  - Hypophagia [None]
  - Abdominal distension [None]
  - Hospice care [None]
